FAERS Safety Report 4552921-7 (Version None)
Quarter: 2005Q1

REPORT INFORMATION
  Report Type: 
  Country: None (occurrence: None)
  Receive Date: 20050114
  Receipt Date: 20050106
  Transmission Date: 20050727
  Serious: Yes (Hospitalization, Other)
  Sender: FDA-Public Use
  Company Number: US-GLAXOSMITHKLINE-A0539615A

PATIENT
  Age: 74 Year
  Sex: Female
  Weight: 54.5 kg

DRUGS (3)
  1. CITRUCEL SUGAR-FREE SUSPENSION ORANGE [Suspect]
     Indication: CONSTIPATION
     Route: 048
     Dates: start: 20041001
  2. STOOL SOFTENER [Concomitant]
     Indication: CONSTIPATION
     Route: 048
  3. THYROID TAB [Concomitant]
     Indication: THYROIDECTOMY PARTIAL
     Route: 048

REACTIONS (3)
  - ABDOMINAL HERNIA [None]
  - ILL-DEFINED DISORDER [None]
  - IMPAIRED DRIVING ABILITY [None]
